FAERS Safety Report 14435225 (Version 1)
Quarter: 2018Q1

REPORT INFORMATION
  Report Type: Spontaneous
  Country: US (occurrence: US)
  Receive Date: 20180124
  Receipt Date: 20180124
  Transmission Date: 20180509
  Serious: Yes (Hospitalization)
  Sender: FDA-Public Use
  Company Number: None

PATIENT
  Age: 74 Year
  Sex: Male
  Weight: 97.9 kg

DRUGS (2)
  1. CASODEX [Suspect]
     Active Substance: BICALUTAMIDE
     Dates: end: 20180117
  2. LEUPROLIDE ACETATE. [Suspect]
     Active Substance: LEUPROLIDE ACETATE
     Dates: end: 20171130

REACTIONS (7)
  - Hyperhidrosis [None]
  - Electrocardiogram ST segment elevation [None]
  - Vascular stent occlusion [None]
  - Hypotension [None]
  - Dyspnoea [None]
  - Chest pain [None]
  - Ejection fraction decreased [None]

NARRATIVE: CASE EVENT DATE: 20180102
